FAERS Safety Report 11227970 (Version 1)
Quarter: 2015Q2

REPORT INFORMATION
  Report Type: Spontaneous
  Country: GB (occurrence: GB)
  Receive Date: 20150630
  Receipt Date: 20150630
  Transmission Date: 20150821
  Serious: Yes (Hospitalization)
  Sender: FDA-Public Use
  Company Number: GB-TEVA-573306ACC

PATIENT
  Age: 94 Year
  Sex: Female

DRUGS (8)
  1. TRIMETHOPRIM. [Suspect]
     Active Substance: TRIMETHOPRIM
     Dosage: 400 MILLIGRAM DAILY; 3 DAYS
     Route: 048
     Dates: start: 20141103, end: 20141206
  2. SALBUTAMOL [Concomitant]
     Active Substance: ALBUTEROL
     Route: 061
  3. ADCAL-D3 [Concomitant]
     Active Substance: CALCIUM CARBONATE\CHOLECALCIFEROL
     Dosage: 2 DOSAGE FORMS DAILY;
     Route: 048
  4. CODEINE [Concomitant]
     Active Substance: CODEINE
     Dosage: FOUR TIMES DAILY AS NECESSARY
     Route: 048
  5. SODIUM BICARBONATE. [Concomitant]
     Active Substance: SODIUM BICARBONATE
     Dosage: 1500 MILLIGRAM DAILY;
  6. AMITRIPTYLINE [Concomitant]
     Active Substance: AMITRIPTYLINE
     Dosage: 100 MILLIGRAM DAILY; AT NIGHT
     Route: 048
  7. BISOPROLOL [Concomitant]
     Active Substance: BISOPROLOL
     Dosage: 2.5 MILLIGRAM DAILY;
     Route: 048
  8. IPRATROPIUM BROMIDE. [Concomitant]
     Active Substance: IPRATROPIUM BROMIDE
     Dosage: 80 MICROGRAM DAILY;
     Route: 061

REACTIONS (1)
  - Acute kidney injury [Recovering/Resolving]
